FAERS Safety Report 8145017-9 (Version None)
Quarter: 2012Q1

REPORT INFORMATION
  Report Type: 
  Country: None (occurrence: None)
  Receive Date: 20120217
  Receipt Date: 20120207
  Transmission Date: 20120608
  Serious: Yes (Other)
  Sender: FDA-Public Use
  Company Number: PHHY2012FR010644

PATIENT
  Age: 72 Year
  Sex: Male

DRUGS (1)
  1. GLEEVEC [Suspect]
     Indication: CHRONIC MYELOID LEUKAEMIA
     Dosage: 400 MG, DAILY
     Route: 048
     Dates: start: 20030601

REACTIONS (3)
  - CHOLESTASIS [None]
  - HEPATIC NEOPLASM MALIGNANT [None]
  - NEOPLASM MALIGNANT [None]
